FAERS Safety Report 6787430-8 (Version None)
Quarter: 2010Q2

REPORT INFORMATION
  Report Type: 
  Country: None (occurrence: None)
  Receive Date: 20100623
  Receipt Date: 20070409
  Transmission Date: 20101027
  Serious: No
  Sender: FDA-Public Use
  Company Number: US-PFIZER INC-2007028808

PATIENT
  Age: 63 Year
  Sex: Female
  Weight: 46.72 kg

DRUGS (2)
  1. GEODON [Suspect]
     Indication: MAJOR DEPRESSION
     Dates: start: 20070407
  2. SYNTHROID [Concomitant]

REACTIONS (2)
  - TINNITUS [None]
  - TONGUE DISORDER [None]
